FAERS Safety Report 13918591 (Version 1)
Quarter: 2017Q3

REPORT INFORMATION
  Report Type: Spontaneous
  Country: US (occurrence: US)
  Receive Date: 20170829
  Receipt Date: 20170829
  Transmission Date: 20171127
  Serious: Yes (Hospitalization)
  Sender: FDA-Public Use
  Company Number: US-ALLERGAN-1747924US

PATIENT
  Age: 2 Year
  Sex: Male

DRUGS (1)
  1. BOTOX [Suspect]
     Active Substance: ONABOTULINUMTOXINA
     Indication: CEREBRAL PALSY
     Dosage: UNK, SINGLE
     Route: 030

REACTIONS (5)
  - Rhinovirus infection [Unknown]
  - Septic shock [Unknown]
  - Respiratory distress [Unknown]
  - Parainfluenzae virus infection [Unknown]
  - Respiratory disorder [Unknown]
